FAERS Safety Report 9012552 (Version 1)
Quarter: 2013Q1

REPORT INFORMATION
  Report Type: Spontaneous
  Country: US (occurrence: US)
  Receive Date: 20130114
  Receipt Date: 20130114
  Transmission Date: 20140127
  Serious: Yes (Disabling)
  Sender: FDA-Public Use
  Company Number: US-PERRIGO-13US000058

PATIENT
  Age: 40 Year
  Sex: Female
  Weight: 54.42 kg

DRUGS (2)
  1. TRIAMCINOLONE ACETONIDE RX 0.1% 2F8 [Suspect]
     Indication: PHOTOSENSITIVITY REACTION
     Dosage: UNK, PRN
     Route: 061
     Dates: start: 201208, end: 20121204
  2. SYNTHROID [Concomitant]
     Indication: HYPOTHYROIDISM
     Dosage: UNK, UNK
     Route: 048
     Dates: start: 201205, end: 20121218

REACTIONS (2)
  - Retinal detachment [Not Recovered/Not Resolved]
  - Vision blurred [Not Recovered/Not Resolved]
